FAERS Safety Report 4610490-7 (Version None)
Quarter: 2005Q1

REPORT INFORMATION
  Report Type: 
  Country: None (occurrence: None)
  Receive Date: 20050316
  Receipt Date: 20050131
  Transmission Date: 20050727
  Serious: Yes (Hospitalization, Disabling)
  Sender: FDA-Public Use
  Company Number: DE-MERCK-0502DEU00010

PATIENT
  Age: 61 Year
  Sex: Female
  Weight: 67 kg

DRUGS (8)
  1. FOSAMAX [Suspect]
     Indication: OSTEOPOROSIS
     Route: 048
     Dates: start: 20040801
  2. CALCIUM (UNSPECIFIED) AND VITAMIN D (UNSPECIFIED) [Concomitant]
     Indication: OSTEOPOROSIS
     Route: 065
     Dates: start: 20040801
  3. NITRENDIPINE [Concomitant]
     Indication: HYPERTENSION
     Route: 048
     Dates: start: 20020101
  4. HYDROCHLOROTHIAZIDE [Concomitant]
     Indication: HYPERTENSION
     Route: 048
     Dates: start: 20020101
  5. DIPYRONE [Concomitant]
     Indication: BACK PAIN
     Route: 065
     Dates: start: 20040801
  6. DIPYRONE [Concomitant]
     Indication: OSTEOCHONDROSIS
     Route: 065
     Dates: start: 20040801
  7. FLUPIRTINE MALEATE [Concomitant]
     Indication: BACK PAIN
     Route: 048
     Dates: start: 20040801
  8. FLUPIRTINE MALEATE [Concomitant]
     Indication: OSTEOCHONDROSIS
     Route: 048
     Dates: start: 20040801

REACTIONS (2)
  - CHRONIC LYMPHOCYTIC LEUKAEMIA [None]
  - NON-HODGKIN'S LYMPHOMA [None]
